FAERS Safety Report 14219964 (Version 1)
Quarter: 2017Q4

REPORT INFORMATION
  Report Type: Spontaneous
  Country: US (occurrence: US)
  Receive Date: 20171123
  Receipt Date: 20171123
  Transmission Date: 20180321
  Serious: Yes (Other)
  Sender: FDA-Public Use
  Company Number: US-JNJFOC-20171011534

PATIENT
  Age: 51 Year
  Sex: Male

DRUGS (7)
  1. DARZALEX [Suspect]
     Active Substance: DARATUMUMAB
     Indication: PRODUCT USED FOR UNKNOWN INDICATION
     Dosage: (WASTE OF 30.5) PREPARED IN 500 CC NORMAL SALINE, STARTED AT 10:15, STOPPED AT 12:15.
     Route: 042
     Dates: start: 20170831, end: 20170831
  2. PEPCID [Concomitant]
     Active Substance: FAMOTIDINE
     Indication: PRODUCT USED FOR UNKNOWN INDICATION
     Dosage: STOPPED AT 10:17
     Route: 050
     Dates: start: 20170831
  3. ACETAMINOPHEN. [Concomitant]
     Active Substance: ACETAMINOPHEN
     Indication: PRODUCT USED FOR UNKNOWN INDICATION
     Dosage: STOPPED AT 9:30
     Route: 048
     Dates: start: 20170831
  4. BENADRYL [Concomitant]
     Active Substance: DIPHENHYDRAMINE HYDROCHLORIDE
     Indication: PRODUCT USED FOR UNKNOWN INDICATION
     Dosage: GIVEN IN 100 CC NORMAL SALINE, START AT 9:40 AND STOPPED AT 10:15.
     Route: 042
     Dates: start: 20170831
  5. DARZALEX [Suspect]
     Active Substance: DARATUMUMAB
     Indication: PRODUCT USED FOR UNKNOWN INDICATION
     Dosage: STARTED AT 13:20 AND STOPPED AT 17:05
     Route: 042
     Dates: start: 20170831
  6. SOLU-MEDROL [Concomitant]
     Active Substance: METHYLPREDNISOLONE SODIUM SUCCINATE
     Indication: PRODUCT USED FOR UNKNOWN INDICATION
     Dosage: STOPPED AT 9:35
     Route: 050
     Dates: start: 20170831
  7. TYLENOL [Concomitant]
     Active Substance: ACETAMINOPHEN
     Indication: PRODUCT USED FOR UNKNOWN INDICATION
     Dosage: STOPPED AT 9:30
     Route: 048
     Dates: start: 20170831

REACTIONS (3)
  - Hypertension [Recovered/Resolved]
  - Infusion related reaction [Recovered/Resolved]
  - Hyperhidrosis [Recovered/Resolved]

NARRATIVE: CASE EVENT DATE: 20170831
